FAERS Safety Report 25316970 (Version 2)
Quarter: 2025Q2

REPORT INFORMATION
  Report Type: Report from Study
  Country: US (occurrence: US)
  Receive Date: 20250515
  Receipt Date: 20250618
  Transmission Date: 20250717
  Serious: Yes (Death, Other)
  Sender: ACADIA PHARMACEUTICALS
  Company Number: US-ACADIA PHARMACEUTICALS INC.-ACA-2025-PIM-005691

PATIENT
  Age: 71 Year
  Sex: Female

DRUGS (9)
  1. NUPLAZID [Suspect]
     Active Substance: PIMAVANSERIN TARTRATE
     Indication: Parkinson^s disease
     Dosage: 34 MILLIGRAM, QD
     Route: 048
     Dates: start: 20211213
  2. RYTARY [Concomitant]
     Active Substance: CARBIDOPA\LEVODOPA
  3. LAMOTRIGINE [Concomitant]
     Active Substance: LAMOTRIGINE
  4. LEVOTHYROXINE [Concomitant]
     Active Substance: LEVOTHYROXINE
  5. BACLOFEN [Concomitant]
     Active Substance: BACLOFEN
  6. DULCOLAX (BISACODYL) [Concomitant]
     Active Substance: BISACODYL
  7. COLACE [Concomitant]
     Active Substance: DOCUSATE SODIUM
  8. TYLENOL [Concomitant]
     Active Substance: ACETAMINOPHEN
  9. XEOMIN [Concomitant]
     Active Substance: INCOBOTULINUMTOXINA

REACTIONS (1)
  - Death [Fatal]

NARRATIVE: CASE EVENT DATE: 20250406
